FAERS Safety Report 11616047 (Version 4)
Quarter: 2016Q2

REPORT INFORMATION
  Report Type: Report from Study
  Country: PL (occurrence: PL)
  Receive Date: 20151009
  Receipt Date: 20160531
  Transmission Date: 20160815
  Serious: Yes (Hospitalization, Other)
  Sender: FDA-Public Use
  Company Number: PHHY2015PL121941

PATIENT
  Age: 52 Year

DRUGS (15)
  1. NEBILET [Concomitant]
     Active Substance: NEBIVOLOL
     Indication: PRODUCT USED FOR UNKNOWN INDICATION
     Route: 065
  2. CLEXANE [Concomitant]
     Active Substance: ENOXAPARIN SODIUM
     Indication: PRODUCT USED FOR UNKNOWN INDICATION
     Route: 065
  3. SYMLEPTIC [Concomitant]
     Indication: PRODUCT USED FOR UNKNOWN INDICATION
     Route: 065
  4. KETONAL [Concomitant]
     Active Substance: KETOPROFEN
     Indication: PAIN
     Route: 065
  5. KREON [Concomitant]
     Active Substance: PANCRELIPASE
     Indication: PRODUCT USED FOR UNKNOWN INDICATION
     Route: 065
  6. TASIGNA [Suspect]
     Active Substance: NILOTINIB
     Indication: CHRONIC MYELOID LEUKAEMIA
     Dosage: 200 OT, TID
     Route: 048
     Dates: start: 20110301
  7. FUROSEMIDE. [Concomitant]
     Active Substance: FUROSEMIDE
     Indication: PRODUCT USED FOR UNKNOWN INDICATION
     Route: 065
  8. TRANSTEC [Concomitant]
     Active Substance: BUPRENORPHINE
     Indication: PRODUCT USED FOR UNKNOWN INDICATION
     Route: 065
  9. CIPROPOL [Concomitant]
     Indication: PRODUCT USED FOR UNKNOWN INDICATION
     Dosage: UNK UNK, BID
     Route: 065
  10. NONPRES [Concomitant]
     Indication: PRODUCT USED FOR UNKNOWN INDICATION
     Route: 065
  11. ALLUPOL [Concomitant]
     Active Substance: ALLOPURINOL
     Indication: PRODUCT USED FOR UNKNOWN INDICATION
     Route: 065
  12. COLCHICINE. [Concomitant]
     Active Substance: COLCHICINE
     Indication: PRODUCT USED FOR UNKNOWN INDICATION
     Route: 065
  13. CHOLESTIL [Concomitant]
     Indication: PRODUCT USED FOR UNKNOWN INDICATION
     Route: 065
  14. EMANERA [Concomitant]
     Indication: PRODUCT USED FOR UNKNOWN INDICATION
     Route: 065
  15. TASIGNA [Suspect]
     Active Substance: NILOTINIB
     Dosage: 400 OT, BID
     Route: 048
     Dates: start: 20151002

REACTIONS (20)
  - Pyrexia [Unknown]
  - Pericardial effusion [Unknown]
  - Peritoneal disorder [Unknown]
  - Pancreatitis [Recovered/Resolved]
  - Fatigue [Unknown]
  - Weight decreased [Unknown]
  - Abdominal pain upper [Unknown]
  - Diarrhoea [Unknown]
  - Thrombocytosis [Unknown]
  - Vomiting [Unknown]
  - Chronic myeloid leukaemia [Unknown]
  - Dehydration [Unknown]
  - Amylase increased [Unknown]
  - Swelling [Unknown]
  - Oedema peripheral [Unknown]
  - Incorrect drug administration duration [Unknown]
  - Nausea [Unknown]
  - Toxicity to various agents [Unknown]
  - Dyspepsia [Unknown]
  - Lipase increased [Unknown]

NARRATIVE: CASE EVENT DATE: 20160121
